FAERS Safety Report 14777072 (Version 1)
Quarter: 2018Q2

REPORT INFORMATION
  Report Type: Spontaneous
  Country: FR (occurrence: FR)
  Receive Date: 20180419
  Receipt Date: 20180419
  Transmission Date: 20180711
  Serious: Yes (Other)
  Sender: FDA-Public Use
  Company Number: FR-MERCK KGAA-2046007

PATIENT
  Sex: Female

DRUGS (1)
  1. NOVOTHYROX [Suspect]
     Active Substance: LEVOTHYROXINE SODIUM
     Indication: HYPOTHYROIDISM

REACTIONS (27)
  - Carpal tunnel syndrome [None]
  - Road traffic accident [None]
  - Impaired work ability [None]
  - Drug intolerance [None]
  - Psychiatric symptom [None]
  - Weight increased [Recovered/Resolved]
  - Cognitive disorder [None]
  - Memory impairment [None]
  - Altered state of consciousness [None]
  - Affective disorder [None]
  - Depression [None]
  - Foot fracture [None]
  - Confusional state [None]
  - Asthenia [None]
  - Apparent death [None]
  - Fatigue [None]
  - Arthralgia [None]
  - Pain in extremity [Not Recovered/Not Resolved]
  - Crying [None]
  - Psychomotor hyperactivity [None]
  - Aphasia [None]
  - Amnesia [None]
  - Dyskinesia [None]
  - Stress [None]
  - Mental fatigue [None]
  - Muscle spasms [None]
  - Tendon injury [None]
